FAERS Safety Report 13330601 (Version 3)
Quarter: 2017Q2

REPORT INFORMATION
  Report Type: Spontaneous
  Country: ES (occurrence: ES)
  Receive Date: 20170313
  Receipt Date: 20170605
  Transmission Date: 20170830
  Serious: Yes (Other)
  Sender: FDA-Public Use
  Company Number: ES-REGENERON PHARMACEUTICALS, INC.-2017-12916

PATIENT

DRUGS (9)
  1. AFLIBERCEPT IAI [Suspect]
     Active Substance: AFLIBERCEPT
     Dosage: 13 CUMULATED INJECTIONS
     Dates: start: 2011, end: 2011
  2. AFLIBERCEPT IAI [Suspect]
     Active Substance: AFLIBERCEPT
     Dosage: 1 DF, Q2MON (5 INJECTIONS)
     Dates: start: 2010, end: 2010
  3. AFLIBERCEPT IAI [Suspect]
     Active Substance: AFLIBERCEPT
     Indication: NEOVASCULAR AGE-RELATED MACULAR DEGENERATION
     Dosage: 3 INJECTIONS
     Dates: start: 2008, end: 2008
  4. AFLIBERCEPT IAI [Suspect]
     Active Substance: AFLIBERCEPT
     Dosage: 18 CUMULATED INJECTIONS
     Dates: start: 2012, end: 2012
  5. AFLIBERCEPT IAI [Suspect]
     Active Substance: AFLIBERCEPT
     Dosage: 23 CUMULATED INJECTIONS
     Dates: start: 2013, end: 2013
  6. AFLIBERCEPT IAI [Suspect]
     Active Substance: AFLIBERCEPT
     Dosage: 1 DF, Q2MON (5 INJECTIONS)
     Dates: start: 2009, end: 2009
  7. AFLIBERCEPT IAI [Suspect]
     Active Substance: AFLIBERCEPT
     Dosage: 1 DF, Q2MON
     Dates: start: 201309, end: 2013
  8. AFLIBERCEPT IAI [Suspect]
     Active Substance: AFLIBERCEPT
     Dosage: 28 CUMULATED INJECTIONS (ONLY THREE ON THE LAST TWO YEARS)
     Dates: start: 2015, end: 2016
  9. AFLIBERCEPT IAI [Suspect]
     Active Substance: AFLIBERCEPT
     Dosage: BIMONTHLY PRN, 24 CUMULATED INJECTIONS
     Dates: start: 2014, end: 2014

REACTIONS (6)
  - Dry age-related macular degeneration [Unknown]
  - Eye haemorrhage [Unknown]
  - Retinal thickening [Unknown]
  - Cystoid macular oedema [Unknown]
  - Visual impairment [Unknown]
  - Visual acuity reduced [Recovered/Resolved]

NARRATIVE: CASE EVENT DATE: 2010
